FAERS Safety Report 5118555-0 (Version None)
Quarter: 2006Q4

REPORT INFORMATION
  Report Type: 
  Country: None (occurrence: None)
  Receive Date: 20061002
  Receipt Date: 20060925
  Transmission Date: 20070319
  Serious: Yes (Other)
  Sender: FDA-Public Use
  Company Number: US-KINGPHARMUSA00001-K200601226

PATIENT
  Age: 80 Year
  Sex: Male
  Weight: 93 kg

DRUGS (13)
  1. ALTACE [Suspect]
     Indication: CARDIOVASCULAR EVENT PROPHYLAXIS
     Dosage: NI, NI, NI
     Route: 048
     Dates: start: 20030221
  2. PLACEBO FOR MICARDIS [Suspect]
     Indication: CARDIOVASCULAR EVENT PROPHYLAXIS
     Dosage: NI, NI, NI
     Route: 065
     Dates: start: 20030221
  3. ASPIRIN                            /00002701/ [Concomitant]
  4. AMIODARONE HCL [Concomitant]
  5. HYDROCHLOROTHIAZDE TAB [Concomitant]
  6. VITAMIN B COMPLEX                  /00003501/ [Concomitant]
  7. DITROPAN                           /00538901/ [Concomitant]
     Dosage: XL
  8. FOLIC ACID [Concomitant]
  9. LEVOXYL [Concomitant]
  10. NORVASC                            /00972401/ [Concomitant]
  11. VYTORIN [Concomitant]
  12. MULTIVITAMIN                       /00831701/ [Concomitant]
  13. VITAMIN B12                        /00056201/ [Concomitant]
     Dosage: UNK INJECTION

REACTIONS (3)
  - ANAEMIA [None]
  - FATIGUE [None]
  - MYELODYSPLASTIC SYNDROME [None]
